FAERS Safety Report 5929483-2 (Version None)
Quarter: 2008Q3

REPORT INFORMATION
  Report Type: 
  Country: None (occurrence: None)
  Receive Date: 20080922
  Receipt Date: 20070920
  Transmission Date: 20090109
  Serious: No
  Sender: FDA-Public Use
  Company Number: T200701153

PATIENT
  Age: 50 Year
  Sex: Male
  Weight: 104.3 kg

DRUGS (7)
  1. HYDROCODONE BITARTRATE + ACETAMINOPHEN [Suspect]
     Indication: PAIN
     Dosage: 1-2 TABS Q6H,PM, ORAL
     Route: 048
     Dates: start: 20070222
  2. FLONASE [Concomitant]
  3. NAPROXEN [Concomitant]
  4. SEROQUEL [Concomitant]
  5. LISINOPRIL HYDROCHLORTHIAZID (HYDROCHLOROTHIAZIDE, LISINOPRIL) [Concomitant]
  6. ATENOLOL [Concomitant]
  7. XANAX [Concomitant]

REACTIONS (2)
  - CARPAL TUNNEL SYNDROME [None]
  - DRUG INEFFECTIVE [None]
